FAERS Safety Report 5344168-1 (Version None)
Quarter: 2007Q2

REPORT INFORMATION
  Report Type: 
  Country: None (occurrence: None)
  Receive Date: 20070531
  Receipt Date: 20070531
  Transmission Date: 20071010
  Serious: Yes (Hospitalization)
  Sender: FDA-Public Use
  Company Number: None

PATIENT
  Sex: Male
  Weight: 80.4 kg

DRUGS (4)
  1. BEVACIZUMAB (RHUMAB VEGF) [Suspect]
     Dosage: 402 MG
  2. LEUCOVORIN CALCIUM [Suspect]
     Dosage: 736 MG
  3. ELOXATIN [Suspect]
     Dosage: 156 MG
  4. FLUOROURACIL [Suspect]
     Dosage: 5152 MG

REACTIONS (8)
  - ABDOMINAL PAIN [None]
  - DYSPNOEA [None]
  - GASTROINTESTINAL DISORDER [None]
  - HICCUPS [None]
  - LARGE INTESTINE PERFORATION [None]
  - NAUSEA [None]
  - PNEUMOPERITONEUM [None]
  - VOMITING [None]
